FAERS Safety Report 16651641 (Version 1)
Quarter: 2019Q3

REPORT INFORMATION
  Report Type: Spontaneous
  Country: FR (occurrence: FR)
  Receive Date: 20190731
  Receipt Date: 20190731
  Transmission Date: 20191004
  Serious: No
  Sender: FDA-Public Use
  Company Number: FR-BEH-2019104647

PATIENT
  Age: 5 Month
  Sex: Female

DRUGS (1)
  1. HIZENTRA [Suspect]
     Active Substance: HUMAN IMMUNOGLOBULIN G
     Indication: IMMUNOGLOBULINS DECREASED
     Dosage: 1 GRAM PER KILOGRAM
     Route: 065

REACTIONS (2)
  - Overdose [Unknown]
  - No adverse event [Unknown]
